FAERS Safety Report 15688596 (Version 1)
Quarter: 2018Q4

REPORT INFORMATION
  Report Type: Spontaneous
  Country: FR (occurrence: FR)
  Receive Date: 20181205
  Receipt Date: 20181205
  Transmission Date: 20190205
  Serious: Yes (Death, Other)
  Sender: FDA-Public Use
  Company Number: FR-ACCORD-094782

PATIENT
  Age: 57 Year
  Sex: Male

DRUGS (1)
  1. BENDAMUSTINE/BENDAMUSTINE HYDROCHLORIDE [Suspect]
     Active Substance: BENDAMUSTINE HYDROCHLORIDE
     Indication: BLASTIC PLASMACYTOID DENDRITIC CELL NEOPLASIA
     Dosage: 100 MG/M 2 ON DAY 1 AND DAY 2 EVERY 3 WEEKS

REACTIONS (2)
  - Off label use [Unknown]
  - Tumour lysis syndrome [Fatal]
